FAERS Safety Report 24833666 (Version 1)
Quarter: 2025Q1

REPORT INFORMATION
  Report Type: Report from Study
  Country: US (occurrence: US)
  Receive Date: 20250112
  Receipt Date: 20250112
  Transmission Date: 20250408
  Serious: Yes (Hospitalization, Other)
  Sender: ABBVIE
  Company Number: US-ABBVIE-6076311

PATIENT
  Age: 78 Year
  Sex: Female

DRUGS (1)
  1. SKYRIZI [Suspect]
     Active Substance: RISANKIZUMAB-RZAA
     Indication: Crohn^s disease
     Route: 058
     Dates: start: 20240430

REACTIONS (7)
  - Renal failure [Unknown]
  - Arthralgia [Unknown]
  - Crohn^s disease [Unknown]
  - Pain in extremity [Unknown]
  - Hospitalisation [Unknown]
  - Rehabilitation therapy [Unknown]
  - Arthropathy [Unknown]

NARRATIVE: CASE EVENT DATE: 20241001
